FAERS Safety Report 17215269 (Version 4)
Quarter: 2020Q4

REPORT INFORMATION
  Report Type: Report from Study
  Country: US (occurrence: US)
  Receive Date: 20191230
  Receipt Date: 20201229
  Transmission Date: 20210113
  Serious: Yes (Other)
  Sender: FDA-Public Use
  Company Number: US-CLOVIS ONCOLOGY-CLO-2019-002334

PATIENT
  Age: 62 Year
  Sex: Female

DRUGS (6)
  1. RUBRACA [Suspect]
     Active Substance: RUCAPARIB CAMSYLATE
     Indication: OVARIAN CANCER
     Dosage: 200 MG, BID
     Route: 048
     Dates: start: 20191026, end: 2019
  2. RUBRACA [Suspect]
     Active Substance: RUCAPARIB CAMSYLATE
     Dosage: 600 MG, BID
     Route: 048
     Dates: start: 20191026, end: 20200721
  3. TYLENOL [Concomitant]
     Active Substance: ACETAMINOPHEN
     Indication: PRODUCT USED FOR UNKNOWN INDICATION
  4. RUBRACA [Suspect]
     Active Substance: RUCAPARIB CAMSYLATE
     Dosage: 300 MG, BID
     Route: 048
     Dates: start: 2019
  5. RUBRACA [Suspect]
     Active Substance: RUCAPARIB CAMSYLATE
     Dosage: 600 MG, BID
     Dates: start: 20200101
  6. BERINE [Concomitant]
     Indication: PRODUCT USED FOR UNKNOWN INDICATION

REACTIONS (13)
  - Ascites [Recovering/Resolving]
  - Malignant neoplasm progression [Unknown]
  - Sinusitis [Not Recovered/Not Resolved]
  - Nasopharyngitis [Unknown]
  - Hypersomnia [Recovering/Resolving]
  - Photosensitivity reaction [Unknown]
  - Tumour marker increased [Not Recovered/Not Resolved]
  - Constipation [Recovered/Resolved]
  - Constipation [Unknown]
  - Liver function test abnormal [Recovered/Resolved]
  - Anaemia [Not Recovered/Not Resolved]
  - Fatigue [Recovered/Resolved]
  - Product dose omission issue [Unknown]

NARRATIVE: CASE EVENT DATE: 2019
